FAERS Safety Report 20637016 (Version 1)
Quarter: 2022Q1

REPORT INFORMATION
  Report Type: Spontaneous
  Country: US (occurrence: None)
  Receive Date: 20220325
  Receipt Date: 20220325
  Transmission Date: 20220423
  Serious: Yes (Other)
  Sender: FDA-Public Use
  Company Number: None

PATIENT
  Age: 37 Year
  Sex: Female
  Weight: 85.05 kg

DRUGS (1)
  1. SUNBURN RELIEF [Suspect]
     Active Substance: LIDOCAINE
     Indication: Sunburn
     Dosage: FREQUENCY : AS NEEDED;?
     Route: 061
     Dates: start: 20220201, end: 20220308

REACTIONS (1)
  - Application site rash [None]

NARRATIVE: CASE EVENT DATE: 20220208
